FAERS Safety Report 4371027-3 (Version None)
Quarter: 2004Q2

REPORT INFORMATION
  Report Type: 
  Country: None (occurrence: None)
  Receive Date: 20040527
  Receipt Date: 20040511
  Transmission Date: 20050107
  Serious: Yes (Death)
  Sender: FDA-Public Use
  Company Number: 2004-DE-02764GD

PATIENT

DRUGS (6)
  1. CYCLOPHOSPHAMIDE [Suspect]
     Dosage: 50MG/KG (NR) IV
     Route: 042
  2. BUSULFAN [Suspect]
     Dosage: 20 TO 40 MG/M2 (NR) PO
     Route: 048
  3. ANTITHYMOCYTE GLOBULIN (ANTITHYMOCYTE IMMUNOGLOBULIN) [Suspect]
     Dosage: 30MG/KG (NR), IV
     Route: 042
  4. CYCLOSPORINE [Suspect]
     Indication: GRAFT VERSUS HOST DISEASE
  5. METHYLPREDNISOLONE [Suspect]
     Indication: GRAFT VERSUS HOST DISEASE
  6. METHYLPREDNISOLONE [Suspect]
     Indication: PROPHYLAXIS

REACTIONS (4)
  - CYTOMEGALOVIRUS INFECTION [None]
  - GRAFT VERSUS HOST DISEASE [None]
  - HAEMORRHAGE [None]
  - NERVOUS SYSTEM DISORDER [None]
